FAERS Safety Report 13927545 (Version 7)
Quarter: 2018Q1

REPORT INFORMATION
  Report Type: Report from Study
  Country: US (occurrence: US)
  Receive Date: 20170901
  Receipt Date: 20180223
  Transmission Date: 20180508
  Serious: Yes (Death)
  Sender: FDA-Public Use
  Company Number: PHHO2017US012385

PATIENT

DRUGS (5)
  1. METHYLPREDNISOLONE. [Suspect]
     Active Substance: METHYLPREDNISOLONE
     Indication: ACUTE GRAFT VERSUS HOST DISEASE
     Dosage: 85 MG, Q12H
     Route: 042
     Dates: start: 20170719, end: 20170815
  2. METHYLPREDNISOLONE. [Suspect]
     Active Substance: METHYLPREDNISOLONE
     Dosage: 50 MG, Q12H
     Route: 042
     Dates: start: 20170816
  3. TACROLIMUS. [Suspect]
     Active Substance: TACROLIMUS
     Indication: PROPHYLAXIS AGAINST GRAFT VERSUS HOST DISEASE
     Dosage: 26 UG/HR, CONTINUOUS INFUSION
     Route: 065
     Dates: start: 20170731
  4. METHYLPREDNISOLONE. [Suspect]
     Active Substance: METHYLPREDNISOLONE
     Dosage: 90 MG (50 MG AM/40 MG PM, Q12H)
     Route: 042
     Dates: start: 20170821
  5. INC424A [Suspect]
     Active Substance: RUXOLITINIB
     Indication: ACUTE GRAFT VERSUS HOST DISEASE
     Dosage: 5-10 MG BID
     Route: 048
     Dates: start: 20170727, end: 20170809

REACTIONS (1)
  - Pneumonia legionella [Fatal]

NARRATIVE: CASE EVENT DATE: 20170817
